FAERS Safety Report 8140946-4 (Version None)
Quarter: 2012Q1

REPORT INFORMATION
  Report Type: 
  Country: None (occurrence: None)
  Receive Date: 20120216
  Receipt Date: 20120209
  Transmission Date: 20120608
  Serious: Yes (Hospitalization, Other)
  Sender: FDA-Public Use
  Company Number: US-PFIZER INC-2012036890

PATIENT
  Age: 64 Year
  Sex: Female

DRUGS (1)
  1. METRONIDAZOLE [Suspect]
     Indication: CLOSTRIDIAL INFECTION
     Dosage: UNK

REACTIONS (14)
  - SLOW SPEECH [None]
  - MUSCULAR WEAKNESS [None]
  - HYPOXIA [None]
  - POLYNEUROPATHY [None]
  - ENCEPHALOPATHY [None]
  - DYSPHONIA [None]
  - HYPOREFLEXIA [None]
  - NAUSEA [None]
  - CONFUSIONAL STATE [None]
  - LETHARGY [None]
  - DYSARTHRIA [None]
  - PARAPARESIS [None]
  - HYPERCAPNIA [None]
  - DYSKINESIA [None]
